FAERS Safety Report 18607702 (Version 1)
Quarter: 2020Q4

REPORT INFORMATION
  Report Type: Spontaneous
  Country: FR (occurrence: FR)
  Receive Date: 20201212
  Receipt Date: 20201212
  Transmission Date: 20210114
  Serious: Yes (Hospitalization)
  Sender: FDA-Public Use
  Company Number: FR-ROCHE-2730906

PATIENT
  Age: 9 Year
  Sex: Female
  Weight: 25 kg

DRUGS (4)
  1. PLAQUENIL [Suspect]
     Active Substance: HYDROXYCHLOROQUINE SULFATE
     Indication: LUPUS-LIKE SYNDROME
     Route: 048
     Dates: start: 20201113
  2. CORTANCYL [Suspect]
     Active Substance: PREDNISONE
     Indication: LUPUS-LIKE SYNDROME
     Route: 048
     Dates: start: 20201113
  3. CELLCEPT [Suspect]
     Active Substance: MYCOPHENOLATE MOFETIL\MYCOPHENOLATE MOFETIL HYDROCHLORIDE
     Indication: LUPUS-LIKE SYNDROME
     Route: 065
     Dates: start: 20201117
  4. SOLU-MEDROL [Suspect]
     Active Substance: METHYLPREDNISOLONE SODIUM SUCCINATE
     Indication: LUPUS-LIKE SYNDROME
     Route: 042
     Dates: start: 20201110, end: 20201112

REACTIONS (1)
  - Abnormal dreams [Recovering/Resolving]

NARRATIVE: CASE EVENT DATE: 20201121
